FAERS Safety Report 5864483-2 (Version None)
Quarter: 2008Q3

REPORT INFORMATION
  Report Type: 
  Country: None (occurrence: None)
  Receive Date: 20080829
  Receipt Date: 20080724
  Transmission Date: 20090109
  Serious: No
  Sender: FDA-Public Use
  Company Number: US-ABBOTT-08P-163-0460921-00

PATIENT
  Sex: Female
  Weight: 57.204 kg

DRUGS (6)
  1. SIMCOR [Suspect]
     Indication: BLOOD CHOLESTEROL INCREASED
     Dosage: 500/10 MG EVERY EVENING
     Route: 048
     Dates: start: 20080501, end: 20080609
  2. SIMCOR [Suspect]
     Dosage: 1000/20 MG EVERY EVENING
     Route: 048
     Dates: start: 20080609
  3. CLOPIDOGREL [Concomitant]
     Indication: ANTICOAGULANT THERAPY
     Route: 048
  4. RANOLAZINE [Concomitant]
     Indication: CORONARY ARTERY OCCLUSION
     Route: 048
  5. RANOLAZINE [Concomitant]
     Indication: PROPHYLAXIS
  6. LISINOPRIL [Concomitant]
     Indication: HYPERTENSION
     Route: 048

REACTIONS (1)
  - FLUSHING [None]
